FAERS Safety Report 4711716-1 (Version None)
Quarter: 2005Q3

REPORT INFORMATION
  Report Type: 
  Country: None (occurrence: None)
  Receive Date: 20050712
  Receipt Date: 20050207
  Transmission Date: 20060218
  Serious: Yes (Death, Other)
  Sender: FDA-Public Use
  Company Number: PHEH2005US01782

PATIENT
  Age: 69 Year
  Sex: Female

DRUGS (4)
  1. ZOMETA [Suspect]
     Indication: BREAST CANCER
     Dosage: PATIENT WAS ADMINISTERED ZOMETA FOR 31 MOS.
  2. TRASTUZUMAB [Concomitant]
  3. CISPLATIN [Concomitant]
  4. DEXAMETHASONE [Concomitant]

REACTIONS (9)
  - BONE DISORDER [None]
  - DEATH [None]
  - GLOSSODYNIA [None]
  - INFECTION [None]
  - ORAL SOFT TISSUE DISORDER [None]
  - OSTEONECROSIS [None]
  - SEQUESTRECTOMY [None]
  - TOOTH EXTRACTION [None]
  - TRAUMATIC ULCER [None]
